FAERS Safety Report 16705424 (Version 3)
Quarter: 2020Q2

REPORT INFORMATION
  Report Type: Report from Study
  Country: US (occurrence: US)
  Receive Date: 20190815
  Receipt Date: 20200519
  Transmission Date: 20200713
  Serious: Yes (Hospitalization, Other)
  Sender: FDA-Public Use
  Company Number: US-ROCHE-2377668

PATIENT
  Age: 53 Year
  Sex: Female
  Weight: 62.65 kg

DRUGS (13)
  1. DALFAMPRIDINE. [Concomitant]
     Active Substance: DALFAMPRIDINE
  2. IRON [Concomitant]
     Active Substance: IRON
  3. LAMOTRIGINE. [Concomitant]
     Active Substance: LAMOTRIGINE
  4. TRAZODONE [Concomitant]
     Active Substance: TRAZODONE HYDROCHLORIDE
  5. FLAXSEED [Concomitant]
     Active Substance: FLAX SEED
  6. ONDANSETRON [Concomitant]
     Active Substance: ONDANSETRON
  7. ROPINIROLE. [Concomitant]
     Active Substance: ROPINIROLE
  8. LIPITOR [Concomitant]
     Active Substance: ATORVASTATIN CALCIUM
  9. SERTRALINE [Concomitant]
     Active Substance: SERTRALINE HYDROCHLORIDE
  10. OCREVUS [Suspect]
     Active Substance: OCRELIZUMAB
     Indication: PRIMARY PROGRESSIVE MULTIPLE SCLEROSIS
     Dosage: YES?NEXT INFUSION: 14/MAY/2019
     Route: 065
     Dates: start: 20190430
  11. BACLOFEN. [Concomitant]
     Active Substance: BACLOFEN
  12. PIPERINE. [Concomitant]
     Active Substance: PIPERINE
  13. GABAPENTIN. [Concomitant]
     Active Substance: GABAPENTIN

REACTIONS (11)
  - Bladder cyst [Not Recovered/Not Resolved]
  - Cataract [Not Recovered/Not Resolved]
  - Immobile [Unknown]
  - Fall [Unknown]
  - Oral candidiasis [Not Recovered/Not Resolved]
  - Oral herpes [Recovered/Resolved]
  - Urinary tract infection [Not Recovered/Not Resolved]
  - Urinary incontinence [Recovered/Resolved]
  - Incontinence [Unknown]
  - Fatigue [Not Recovered/Not Resolved]
  - Oropharyngeal pain [Not Recovered/Not Resolved]

NARRATIVE: CASE EVENT DATE: 20190501
